FAERS Safety Report 4394092-6 (Version None)
Quarter: 2004Q3

REPORT INFORMATION
  Report Type: 
  Country: None (occurrence: None)
  Receive Date: 20040708
  Receipt Date: 20040708
  Transmission Date: 20050211
  Serious: Yes (Death)
  Sender: FDA-Public Use
  Company Number: None

PATIENT
  Age: 61 Year
  Sex: Female
  Weight: 64.4 kg

DRUGS (7)
  1. GEMCITABINE [Suspect]
     Indication: PANCREATIC CARCINOMA METASTATIC
     Dosage: 1500MG/M2 D1, 8, 15, Q 28 INTRAVENOUS
     Route: 042
     Dates: start: 20040414, end: 20040421
  2. GLIPIZIDE [Concomitant]
  3. ECOTRIN [Concomitant]
  4. DIOVAN [Concomitant]
  5. POTASSIUM [Concomitant]
  6. ZOLOFT [Concomitant]
  7. CLONAZEPAM [Concomitant]

REACTIONS (9)
  - COAGULOPATHY [None]
  - DEHYDRATION [None]
  - DRUG TOXICITY [None]
  - HEPATIC FAILURE [None]
  - HYPOTENSION [None]
  - NEOPLASM PROGRESSION [None]
  - NEUTROPENIA [None]
  - RENAL FAILURE [None]
  - SEDATION [None]
